FAERS Safety Report 6260432-6 (Version None)
Quarter: 2009Q3

REPORT INFORMATION
  Report Type: 
  Country: None (occurrence: None)
  Receive Date: 20090706
  Receipt Date: 20090623
  Transmission Date: 20100115
  Serious: Yes (Hospitalization)
  Sender: FDA-Public Use
  Company Number: 1000006020

PATIENT
  Age: 61 Year
  Sex: Female

DRUGS (9)
  1. ESCITALOPRAM [Suspect]
     Indication: ANXIETY
     Dosage: 30 MG (30 MG, 1 IN 1 D), ORAL
     Route: 048
     Dates: end: 20090321
  2. ESCITALOPRAM [Suspect]
     Indication: ANXIETY
     Dosage: 10 MG (10 MG, 1 IN 1 D), ORAL
     Route: 048
     Dates: start: 20090324
  3. HALDOL [Concomitant]
  4. ALBYL-E [Concomitant]
  5. ATACAND [Concomitant]
  6. SOBRIL [Concomitant]
  7. PERSANTINE [Concomitant]
  8. PARACETAMOL [Concomitant]
  9. SIMVASTATIN [Concomitant]

REACTIONS (19)
  - AMNESIA [None]
  - BASE EXCESS NEGATIVE [None]
  - BLOOD BICARBONATE DECREASED [None]
  - BLOOD CALCIUM DECREASED [None]
  - BLOOD CREATINE PHOSPHOKINASE INCREASED [None]
  - BLOOD GLUCOSE INCREASED [None]
  - BLOOD OSMOLARITY DECREASED [None]
  - BLOOD PH DECREASED [None]
  - BLOOD UREA DECREASED [None]
  - CARBON DIOXIDE DECREASED [None]
  - CEREBRAL ATROPHY [None]
  - CEREBRAL INFARCTION [None]
  - GRAND MAL CONVULSION [None]
  - HAEMOGLOBIN DECREASED [None]
  - HYPONATRAEMIA [None]
  - INJURY [None]
  - MEAN CELL VOLUME DECREASED [None]
  - OVERDOSE [None]
  - OXYGEN SATURATION DECREASED [None]
